FAERS Safety Report 5689260-7 (Version None)
Quarter: 2008Q1

REPORT INFORMATION
  Report Type: 
  Country: None (occurrence: None)
  Receive Date: 20080331
  Receipt Date: 20080321
  Transmission Date: 20080703
  Serious: Yes (Death, Hospitalization, Disabling, Other)
  Sender: FDA-Public Use
  Company Number: US-ELI_LILLY_AND_COMPANY-US200801005396

PATIENT
  Sex: Female

DRUGS (17)
  1. FORTEO [Suspect]
     Indication: OSTEOPOROSIS
     Dosage: 20 UG, DAILY (1/D)
     Route: 058
     Dates: start: 20070613, end: 20071030
  2. FUROSEMIDE [Concomitant]
     Dosage: 80 MG, 2/D
     Route: 048
  3. PREVACID [Concomitant]
     Dosage: 30 MG, 2/D
     Route: 048
  4. SPIRONO [Concomitant]
     Dosage: 50 MG, 2/D
     Route: 048
  5. EFFEXOR [Concomitant]
     Dosage: 150 MG, DAILY (1/D)
     Route: 048
  6. COMBIVENT [Concomitant]
     Dosage: 2 PUFFS
     Route: 055
  7. LORATADINE [Concomitant]
     Dosage: 10 MG, DAILY (1/D)
     Route: 048
  8. PANCRELIPASE [Concomitant]
     Dosage: 20 MG, DAILY (1/D)
     Route: 048
  9. NYSTATIN [Concomitant]
     Dosage: SWISH AND SWALLOW
  10. MULTI-VITAMIN [Concomitant]
     Dosage: UNK, DAILY (1/D)
     Route: 048
  11. CYANOCOBALAMIN [Concomitant]
     Dosage: 1000 UG, MONTHLY (1/M)
     Route: 030
  12. LEVAQUIN [Concomitant]
     Dosage: EVERY 48 HOURS
     Route: 048
  13. KLONOPIN [Concomitant]
     Dosage: AT BEDTIME
  14. FLOVENT [Concomitant]
     Dosage: 1 PUFF EVERY 12 HOURS
     Route: 055
  15. IBUPROFEN [Concomitant]
     Dosage: THREE TIMES DAILY
     Route: 048
  16. MYLANTA GAS [Concomitant]
     Dosage: FOUR TIMES DAILY
  17. MAGNESIUM SULFATE [Concomitant]
     Dosage: 1 G, 4/D
     Route: 042

REACTIONS (40)
  - AMMONIA INCREASED [None]
  - ANXIETY [None]
  - ASPARTATE AMINOTRANSFERASE INCREASED [None]
  - ASTHENIA [None]
  - BILIRUBIN CONJUGATED INCREASED [None]
  - BLOOD ALBUMIN DECREASED [None]
  - BLOOD ALKALINE PHOSPHATASE INCREASED [None]
  - BLOOD BILIRUBIN INCREASED [None]
  - BLOOD CALCIUM DECREASED [None]
  - BLOOD GLUCOSE FLUCTUATION [None]
  - BLOOD SODIUM DECREASED [None]
  - BLOOD UREA INCREASED [None]
  - BREAST CANCER IN SITU [None]
  - CACHEXIA [None]
  - DEHYDRATION [None]
  - DEPRESSED LEVEL OF CONSCIOUSNESS [None]
  - DEPRESSION [None]
  - DIARRHOEA [None]
  - DRY SKIN [None]
  - DYSPHAGIA [None]
  - ENCEPHALOPATHY [None]
  - ESCHERICHIA INFECTION [None]
  - GAIT DISTURBANCE [None]
  - HEPATIC CIRRHOSIS [None]
  - HEPATIC FAILURE [None]
  - HYPERSPLENISM [None]
  - HYPERTENSION [None]
  - INTERNATIONAL NORMALISED RATIO DECREASED [None]
  - MENTAL STATUS CHANGES [None]
  - MOVEMENT DISORDER [None]
  - PALLOR [None]
  - PNEUMONIA [None]
  - PROTEIN TOTAL DECREASED [None]
  - PROTHROMBIN TIME PROLONGED [None]
  - RED BLOOD CELL COUNT DECREASED [None]
  - RESTLESS LEGS SYNDROME [None]
  - SEDATION [None]
  - TYPE 2 DIABETES MELLITUS [None]
  - URINARY TRACT INFECTION [None]
  - WHITE BLOOD CELL COUNT INCREASED [None]
